FAERS Safety Report 10597737 (Version 1)
Quarter: 2014Q4

REPORT INFORMATION
  Report Type: Spontaneous
  Country: US (occurrence: None)
  Receive Date: 20141120
  Receipt Date: 20141120
  Transmission Date: 20150529
  Serious: Yes (Hospitalization)
  Sender: FDA-Public Use
  Company Number: None

PATIENT
  Age: 69 Year
  Sex: Male
  Weight: 70 kg

DRUGS (2)
  1. CARBOPLATIN. [Suspect]
     Active Substance: CARBOPLATIN
     Dosage: DOSE REDUCED ON CYCLE 2 DAY 1 AND AGAIN CYCLE 3 DAY 1 PER PROTOCOL FOR AE^S.  DOSE REFLECTS DOSE ON CYCLE 6 DAYS 1?
     Dates: end: 20120814
  2. TAXOTERE [Suspect]
     Active Substance: DOCETAXEL
     Dosage: PATIENT WAS TREATED FOR 6 CYCLES AND DOSE REDUCED ON CYCLES 2 AND 3 FOR AE^S
     Dates: end: 20120814

REACTIONS (4)
  - Haemoptysis [None]
  - Pancytopenia [None]
  - Febrile neutropenia [None]
  - Myelodysplastic syndrome [None]

NARRATIVE: CASE EVENT DATE: 20140910
